FAERS Safety Report 8002651-4 (Version None)
Quarter: 2011Q4

REPORT INFORMATION
  Report Type: 
  Country: None (occurrence: None)
  Receive Date: 20111222
  Receipt Date: 20111215
  Transmission Date: 20120403
  Serious: Yes (Other)
  Sender: FDA-Public Use
  Company Number: DE-VIIV HEALTHCARE LIMITED-D0073825A

PATIENT
  Sex: Male
  Weight: 84 kg

DRUGS (5)
  1. PRAVASTATIN [Concomitant]
     Indication: LIPID METABOLISM DISORDER
     Dosage: 40MG PER DAY
     Route: 065
  2. PRASUGREL [Concomitant]
     Indication: HIV INFECTION
     Dosage: 300MG PER DAY
     Route: 048
  3. BISOPROLOL FUMARATE [Concomitant]
     Indication: HYPERTENSION
     Dosage: 2.5MG PER DAY
     Route: 065
  4. EPIVIR [Suspect]
     Indication: HIV INFECTION
     Dosage: 300MG PER DAY
     Route: 048
  5. VIREAD [Concomitant]
     Indication: HIV INFECTION
     Dosage: 245MG PER DAY
     Route: 065

REACTIONS (1)
  - POLYCYTHAEMIA VERA [None]
